FAERS Safety Report 25152676 (Version 1)
Quarter: 2025Q2

REPORT INFORMATION
  Report Type: Spontaneous
  Country: US (occurrence: US)
  Receive Date: 20250402
  Receipt Date: 20250402
  Transmission Date: 20250717
  Serious: Yes (Hospitalization, Other)
  Sender: Haleon PLC
  Company Number: US-HALEON-2236179

PATIENT
  Age: 23 Year
  Sex: Female

DRUGS (1)
  1. ACETAMINOPHEN [Suspect]
     Active Substance: ACETAMINOPHEN
     Indication: Abdominal pain

REACTIONS (7)
  - Acute hepatic failure [Unknown]
  - Mental status changes [Recovering/Resolving]
  - Exposure during pregnancy [Unknown]
  - Toxicity to various agents [Unknown]
  - Brain oedema [Recovered/Resolved]
  - Overdose [Unknown]
  - Encephalopathy [Not Recovered/Not Resolved]
